FAERS Safety Report 11934292 (Version 1)
Quarter: 2016Q1

REPORT INFORMATION
  Report Type: Spontaneous
  Country: US (occurrence: US)
  Receive Date: 20160121
  Receipt Date: 20160121
  Transmission Date: 20160526
  Serious: No
  Sender: FDA-Public Use
  Company Number: US-PERRIGO-15US007668

PATIENT
  Age: 54 Year
  Sex: Female

DRUGS (2)
  1. ACETAMINOPHEN-ASPIRIN-CAFFEINE 6X0 [Suspect]
     Active Substance: ACETAMINOPHEN\ASPIRIN\CAFFEINE
     Indication: HEADACHE
     Dosage: UNKNOWN, PRN
     Route: 048
     Dates: start: 2015
  2. ACETAMINOPHEN-ASPIRIN-CAFFEINE 6X0 [Suspect]
     Active Substance: ACETAMINOPHEN\ASPIRIN\CAFFEINE
     Dosage: TWO TABLETS, TWICE IN 15 MINUTES
     Route: 048
     Dates: start: 20150717, end: 20150717

REACTIONS (2)
  - Accidental exposure to product [Recovered/Resolved]
  - Nausea [Recovered/Resolved]

NARRATIVE: CASE EVENT DATE: 2015
